FAERS Safety Report 24636365 (Version 1)
Quarter: 2024Q4

REPORT INFORMATION
  Report Type: Spontaneous
  Country: US (occurrence: US)
  Receive Date: 20241119
  Receipt Date: 20241119
  Transmission Date: 20250115
  Serious: Yes (Life-Threatening, Hospitalization, Other)
  Sender: HIKMA
  Company Number: US-MLMSERVICE-20241030-PI245900-00089-1

PATIENT
  Age: 61 Year
  Sex: Female

DRUGS (1)
  1. CEFTRIAXONE [Suspect]
     Active Substance: CEFTRIAXONE
     Indication: Urinary tract infection
     Dosage: UNK
     Route: 065

REACTIONS (1)
  - Drug eruption [Recovered/Resolved]
